FAERS Safety Report 10573071 (Version 1)
Quarter: 2014Q4

REPORT INFORMATION
  Report Type: Spontaneous
  Country: FR (occurrence: None)
  Receive Date: 20141106
  Receipt Date: 20141106
  Transmission Date: 20150529
  Serious: Yes (Congenital Anomaly)
  Sender: FDA-Public Use
  Company Number: IMP_08031_2014

PATIENT
  Sex: Male

DRUGS (1)
  1. DIVALPROEX SODIUM. [Suspect]
     Active Substance: DIVALPROEX SODIUM
     Indication: MATERNAL EXPOSURE DURING PREGNANCY
     Route: 064

REACTIONS (8)
  - Foetal exposure during pregnancy [None]
  - Gallbladder anomaly congenital [None]
  - Limb hypoplasia congenital [None]
  - Maternal drugs affecting foetus [None]
  - Talipes [None]
  - Phalangeal hypoplasia [None]
  - Congenital hand malformation [None]
  - Renal fusion anomaly [None]
